FAERS Safety Report 6198252-3 (Version None)
Quarter: 2009Q2

REPORT INFORMATION
  Report Type: 
  Country: None (occurrence: None)
  Receive Date: 20090521
  Receipt Date: 20090515
  Transmission Date: 20091009
  Serious: Yes (Other)
  Sender: FDA-Public Use
  Company Number: US-ALLERGAN-0905809US

PATIENT
  Age: 86 Year
  Sex: Female

DRUGS (2)
  1. BOTOX [Suspect]
     Indication: BLEPHAROSPASM
     Dosage: 76 UNITS, SINGLE
     Route: 030
     Dates: start: 20090331, end: 20090331
  2. LIPITOR [Concomitant]
     Dosage: 20 MG, QD

REACTIONS (5)
  - DIPLOPIA [None]
  - DRUG INEFFECTIVE [None]
  - EYELID PTOSIS [None]
  - IIIRD NERVE PARESIS [None]
  - PERIORBITAL OEDEMA [None]
